FAERS Safety Report 9281002 (Version 1)
Quarter: 2013Q2

REPORT INFORMATION
  Report Type: Spontaneous
  Country: US (occurrence: None)
  Receive Date: 20130508
  Receipt Date: 20130508
  Transmission Date: 20140414
  Serious: Yes (Hospitalization)
  Sender: FDA-Public Use
  Company Number: None

PATIENT
  Age: 5 Year
  Sex: Female
  Weight: 27.1 kg

DRUGS (4)
  1. MERCAPTOPURINE [Suspect]
  2. VINCRISTINE SULFATE [Suspect]
  3. METHOTREXATE [Suspect]
  4. DEXAMETHASONE [Suspect]

REACTIONS (6)
  - Lethargy [None]
  - Blood glucose decreased [None]
  - Mental status changes [None]
  - Hepatic function abnormal [None]
  - Ascites [None]
  - Gallbladder disorder [None]
